FAERS Safety Report 24742236 (Version 1)
Quarter: 2024Q4

REPORT INFORMATION
  Report Type: Spontaneous
  Country: NO (occurrence: NO)
  Receive Date: 20241217
  Receipt Date: 20241217
  Transmission Date: 20250115
  Serious: Yes (Hospitalization, Other)
  Sender: REGENERON
  Company Number: None

PATIENT
  Age: 73 Year
  Sex: Female

DRUGS (7)
  1. PRALUENT [Suspect]
     Active Substance: ALIROCUMAB
     Indication: Hypercholesterolaemia
     Dosage: 75 MG, QOW
     Route: 058
     Dates: start: 2019, end: 2022
  2. PRALUENT [Suspect]
     Active Substance: ALIROCUMAB
     Dosage: 75 MG, Q3W
     Route: 058
     Dates: start: 2022
  3. PRALUENT [Suspect]
     Active Substance: ALIROCUMAB
     Dosage: 75 MG, Q4W
     Route: 058
     Dates: end: 2023
  4. ASPIRIN\MAGNESIUM OXIDE [Concomitant]
     Active Substance: ASPIRIN\MAGNESIUM OXIDE
     Indication: Myocardial infarction
     Dosage: 75 MG, QOD
     Dates: start: 201607
  5. GAVISCON [Concomitant]
     Active Substance: ALUMINUM HYDROXIDE\MAGNESIUM CARBONATE
     Indication: Hiatus hernia
     Dosage: 15 ML EVENING AS NECESSARY
  6. GAVISCON [Concomitant]
     Active Substance: ALUMINUM HYDROXIDE\MAGNESIUM CARBONATE
     Indication: Oesophageal ulcer
  7. NITROGLYCERIN [Concomitant]
     Active Substance: NITROGLYCERIN
     Indication: Angina pectoris
     Dosage: AS NECESSARY

REACTIONS (25)
  - Cognitive disorder [Recovering/Resolving]
  - Disturbance in attention [Recovering/Resolving]
  - Memory impairment [Recovering/Resolving]
  - Confusional state [Recovering/Resolving]
  - Brain fog [Recovering/Resolving]
  - Consciousness fluctuating [Recovering/Resolving]
  - Flat affect [Recovering/Resolving]
  - Insomnia [Recovering/Resolving]
  - Social avoidant behaviour [Recovering/Resolving]
  - Dry mouth [Recovering/Resolving]
  - Oral fungal infection [Recovering/Resolving]
  - Constipation [Recovering/Resolving]
  - Abdominal pain upper [Recovering/Resolving]
  - Urinary retention [Recovering/Resolving]
  - Head titubation [Recovering/Resolving]
  - Concomitant disease aggravated [Recovering/Resolving]
  - Alopecia [Recovering/Resolving]
  - Nail growth abnormal [Recovering/Resolving]
  - Decreased appetite [Recovering/Resolving]
  - Hiatus hernia [Recovering/Resolving]
  - Concomitant disease aggravated [Recovering/Resolving]
  - Dysphagia [Recovering/Resolving]
  - Orthostatic hypotension [Recovering/Resolving]
  - Angina pectoris [Recovering/Resolving]
  - Quality of life decreased [Recovering/Resolving]
